FAERS Safety Report 19386276 (Version 3)
Quarter: 2022Q1

REPORT INFORMATION
  Report Type: Report from Study
  Country: GB (occurrence: None)
  Receive Date: 20210608
  Receipt Date: 20220216
  Transmission Date: 20220423
  Serious: Yes (Hospitalization, Other)
  Sender: FDA-Public Use
  Company Number: GB-SAMSUNG BIOEPIS-SB-2021-11023

PATIENT
  Age: 83 Year
  Sex: Female

DRUGS (3)
  1. METHOTREXATE [Suspect]
     Active Substance: METHOTREXATE
     Indication: Product used for unknown indication
     Route: 065
  2. ETANERCEPT [Suspect]
     Active Substance: ETANERCEPT
     Indication: Rheumatoid arthritis
     Route: 058
     Dates: start: 20200820
  3. ETANERCEPT [Suspect]
     Active Substance: ETANERCEPT
     Dosage: STARTED ON 29-APR (UNSPECIFIED YEAR)
     Route: 065

REACTIONS (6)
  - Malignant melanoma [Unknown]
  - Cataract [Unknown]
  - Wound [Unknown]
  - Alopecia [Unknown]
  - Blister [Not Recovered/Not Resolved]
  - Musculoskeletal stiffness [Not Recovered/Not Resolved]
